FAERS Safety Report 9231831 (Version 3)
Quarter: 2013Q2

REPORT INFORMATION
  Report Type: Spontaneous
  Country: US (occurrence: US)
  Receive Date: 20130415
  Receipt Date: 20130516
  Transmission Date: 20140414
  Serious: No
  Sender: FDA-Public Use
  Company Number: US-PFIZER INC-2013116547

PATIENT
  Sex: Male

DRUGS (2)
  1. CHANTIX [Suspect]
     Indication: TOBACCO ABUSE
     Dosage: UNK
     Route: 048
     Dates: start: 20130129
  2. ALBUTEROL [Concomitant]
     Indication: WHEEZING
     Dosage: II PUFFS Q 4-6 DEGREE PRN
     Dates: start: 20130129

REACTIONS (2)
  - Drug ineffective [Unknown]
  - Abnormal dreams [Recovered/Resolved]
